FAERS Safety Report 7117822-9 (Version None)
Quarter: 2010Q4

REPORT INFORMATION
  Report Type: 
  Country: None (occurrence: None)
  Receive Date: 20101118
  Receipt Date: 20101118
  Transmission Date: 20110411
  Serious: Yes (Disabling, Other)
  Sender: FDA-Public Use
  Company Number: None

PATIENT
  Sex: Female
  Weight: 46.7205 kg

DRUGS (2)
  1. RECLAST [Suspect]
     Indication: BONE SARCOMA
     Dosage: 5MG X1 IV
     Route: 042
     Dates: start: 20091014
  2. RECLAST [Suspect]
     Indication: OSTEOPENIA
     Dosage: 5MG X1 IV
     Route: 042
     Dates: start: 20091014

REACTIONS (12)
  - AMPUTATION STUMP PAIN [None]
  - APHASIA [None]
  - ARTHRALGIA [None]
  - CONTRAINDICATION TO MEDICAL TREATMENT [None]
  - DISCOMFORT [None]
  - INFLUENZA LIKE ILLNESS [None]
  - JOINT RANGE OF MOTION DECREASED [None]
  - JOINT STIFFNESS [None]
  - OVERDOSE [None]
  - PAIN [None]
  - PAIN IN EXTREMITY [None]
  - SLEEP DISORDER [None]
